FAERS Safety Report 7495732-5 (Version None)
Quarter: 2011Q2

REPORT INFORMATION
  Report Type: 
  Country: None (occurrence: None)
  Receive Date: 20110523
  Receipt Date: 20110519
  Transmission Date: 20111010
  Serious: Yes (Other)
  Sender: FDA-Public Use
  Company Number: US-AMGEN-USASP2011026076

PATIENT
  Age: 73 Year
  Sex: Male
  Weight: 88.9 kg

DRUGS (6)
  1. AMBIEN [Concomitant]
  2. PREDNISONE [Concomitant]
     Dosage: UNK
  3. ATENOLOL [Concomitant]
  4. CLOTRIMAZOLE [Concomitant]
  5. NEXIUM [Concomitant]
  6. NPLATE [Suspect]
     Indication: IDIOPATHIC THROMBOCYTOPENIC PURPURA
     Dates: start: 20101214

REACTIONS (1)
  - THERAPEUTIC RESPONSE DECREASED [None]
